FAERS Safety Report 6663279-1 (Version None)
Quarter: 2010Q1

REPORT INFORMATION
  Report Type: 
  Country: None (occurrence: None)
  Receive Date: 20100331
  Receipt Date: 20100331
  Transmission Date: 20100710
  Serious: No
  Sender: FDA-Public Use
  Company Number: None

PATIENT
  Age: 64 Year
  Sex: Male
  Weight: 72.6 kg

DRUGS (1)
  1. CARVEDILOL [Suspect]
     Indication: HYPERTENSION
     Dosage: 6.25 MG BID PO
     Route: 048
     Dates: start: 20091209, end: 20100326

REACTIONS (3)
  - ASTHENIA [None]
  - BRADYCARDIA [None]
  - DIZZINESS [None]
